FAERS Safety Report 5268747-5 (Version None)
Quarter: 2007Q1

REPORT INFORMATION
  Report Type: 
  Country: None (occurrence: None)
  Receive Date: 20061213
  Receipt Date: 20040430
  Transmission Date: 20070707
  Serious: Yes (Other)
  Sender: FDA-Public Use
  Company Number: 2004UW08944

PATIENT

DRUGS (2)
  1. IRESSA [Suspect]
  2. VIRACEPT [Concomitant]

REACTIONS (3)
  - DRUG INTERACTION [None]
  - RENAL DISORDER [None]
  - THROMBOCYTOPENIA [None]
